FAERS Safety Report 23084487 (Version 1)
Quarter: 2023Q4

REPORT INFORMATION
  Report Type: Spontaneous
  Country: FR (occurrence: FR)
  Receive Date: 20231019
  Receipt Date: 20231019
  Transmission Date: 20240110
  Serious: Yes (Hospitalization)
  Sender: FDA-Public Use
  Company Number: FR-PFM-2023-05594

PATIENT
  Age: 34 Year
  Sex: Female
  Weight: 56 kg

DRUGS (7)
  1. BUSULFAN [Suspect]
     Active Substance: BUSULFAN
     Indication: Bone marrow conditioning regimen
     Dosage: 205.2 MG, SINGLE
     Route: 042
     Dates: start: 20111115, end: 20111115
  2. BUSULFAN [Suspect]
     Active Substance: BUSULFAN
     Dosage: 230.4 MG, SINGLE
     Route: 042
     Dates: start: 20111116, end: 20111116
  3. BUSULFAN [Suspect]
     Active Substance: BUSULFAN
     Dosage: 225.6 MG, SINGLE
     Route: 042
     Dates: start: 20111117, end: 20111117
  4. DEFEROXAMINE MESYLATE [Concomitant]
     Active Substance: DEFEROXAMINE MESYLATE
     Indication: Iron overload
     Dosage: UNK
     Route: 065
  5. DEFERIPRONE [Concomitant]
     Active Substance: DEFERIPRONE
     Indication: Iron overload
     Dosage: UNK
     Route: 065
  6. ESTRADIOL [Concomitant]
     Active Substance: ESTRADIOL
     Indication: Hormone replacement therapy
     Dosage: UNK
     Route: 065
  7. ESTIMA [OXYTOCIN] [Concomitant]
     Indication: Hormone replacement therapy
     Dosage: UNK
     Route: 065

REACTIONS (2)
  - Endocrine disorder [Recovered/Resolved]
  - Symphysiolysis [Recovered/Resolved]

NARRATIVE: CASE EVENT DATE: 20170926
